FAERS Safety Report 7439848-8 (Version None)
Quarter: 2011Q2

REPORT INFORMATION
  Report Type: 
  Country: None (occurrence: None)
  Receive Date: 20110427
  Receipt Date: 20101207
  Transmission Date: 20111010
  Serious: No
  Sender: FDA-Public Use
  Company Number: US-MYLANLABS-2010S1022510

PATIENT
  Age: 84 Year
  Sex: Female

DRUGS (3)
  1. DILTIAZEM HCL [Suspect]
     Indication: BLOOD PRESSURE
     Route: 048
  2. ISORBIDE [Concomitant]
     Indication: BLOOD PRESSURE
  3. DILTIAZEM HCL [Suspect]
     Indication: HEADACHE
     Route: 048

REACTIONS (4)
  - HEADACHE [None]
  - BLOOD PRESSURE INCREASED [None]
  - INAPPROPRIATE SCHEDULE OF DRUG ADMINISTRATION [None]
  - DRUG INEFFECTIVE [None]
